FAERS Safety Report 8917469 (Version 2)
Quarter: 2012Q4

REPORT INFORMATION
  Report Type: 
  Country: CN (occurrence: CN)
  Receive Date: 20121120
  Receipt Date: 20121130
  Transmission Date: 20130627
  Serious: Yes (Other)
  Sender: FDA-Public Use
  Company Number: CN-ABBOTT-12P-035-1009124-00

PATIENT
  Age: 18 Year
  Sex: Female

DRUGS (5)
  1. VALPROIC ACID [Suspect]
     Indication: CONVULSION PROPHYLAXIS
     Route: 042
  2. LAMOTRIGINE [Suspect]
     Indication: PRODUCT USED FOR UNKNOWN INDICATION
  3. ROXITHROMYCIN [Concomitant]
  4. ANTIPYRETIC [Concomitant]
     Indication: PYREXIA
  5. ANTIVIRALS [Concomitant]
     Indication: ENCEPHALITIS VIRAL

REACTIONS (1)
  - Liver injury [Unknown]
